FAERS Safety Report 17896889 (Version 1)
Quarter: 2020Q2

REPORT INFORMATION
  Report Type: Spontaneous
  Country: US (occurrence: US)
  Receive Date: 20200615
  Receipt Date: 20200615
  Transmission Date: 20200714
  Serious: No
  Sender: FDA-Public Use
  Company Number: US-PFIZER INC-2017492363

PATIENT
  Age: 34 Year
  Sex: Male

DRUGS (1)
  1. SOMAVERT [Suspect]
     Active Substance: PEGVISOMANT
     Dosage: 20 MG, DAILY
     Dates: start: 201507

REACTIONS (3)
  - Headache [Not Recovered/Not Resolved]
  - Pain in jaw [Not Recovered/Not Resolved]
  - Product dose omission [Unknown]
